FAERS Safety Report 7017602-9 (Version None)
Quarter: 2010Q3

REPORT INFORMATION
  Report Type: 
  Country: None (occurrence: None)
  Receive Date: 20100928
  Receipt Date: 20100920
  Transmission Date: 20110219
  Serious: Yes (Other)
  Sender: FDA-Public Use
  Company Number: US-RB-014016-10

PATIENT
  Age: 72 Year
  Sex: Male

DRUGS (2)
  1. MUCINEX DM [Suspect]
     Dosage: BEEN TAKING TWO TABLETS PER DOSE EVERY 12 HOURS SINCE FRIDAY 17 SEP 2010.
     Route: 048
     Dates: start: 20100917
  2. ZOLOFT [Concomitant]

REACTIONS (1)
  - HALLUCINATION [None]
